FAERS Safety Report 4348347-1 (Version None)
Quarter: 2004Q2

REPORT INFORMATION
  Report Type: 
  Country: None (occurrence: None)
  Receive Date: 20040427
  Receipt Date: 20040422
  Transmission Date: 20050107
  Serious: Yes (Hospitalization)
  Sender: FDA-Public Use
  Company Number: FR-GLAXOSMITHKLINE-B0330718A

PATIENT
  Age: 79 Year
  Sex: Male

DRUGS (10)
  1. AUGMENTIN [Suspect]
     Dosage: 3G PER DAY
     Route: 048
     Dates: start: 20040303, end: 20040306
  2. UMULINE [Suspect]
     Route: 065
     Dates: end: 20040312
  3. KARDEGIC [Suspect]
     Dosage: 75MG PER DAY
     Route: 048
     Dates: start: 20040303
  4. HUMALOG [Suspect]
     Route: 065
     Dates: end: 20040312
  5. ZOCOR [Suspect]
     Dosage: 40MG PER DAY
     Route: 048
     Dates: start: 20040303, end: 20040312
  6. ATACAND [Concomitant]
     Route: 048
  7. LEVOTHYROXINE SODIUM [Concomitant]
     Route: 048
  8. ALLOPURINOL TAB [Concomitant]
     Route: 048
  9. LASIX [Concomitant]
     Route: 065
  10. PLAVIX [Concomitant]
     Route: 048

REACTIONS (5)
  - HAEMATOMA [None]
  - HAEMORRHAGIC DISORDER [None]
  - PETECHIAE [None]
  - PURPURA [None]
  - THROMBOCYTOPENIA [None]
